FAERS Safety Report 16004650 (Version 1)
Quarter: 2019Q1

REPORT INFORMATION
  Report Type: Spontaneous
  Country: US (occurrence: US)
  Receive Date: 20190225
  Receipt Date: 20190225
  Transmission Date: 20190418
  Serious: Yes (Disabling)
  Sender: FDA-Public Use
  Company Number: None

PATIENT
  Age: 67 Year
  Sex: Male
  Weight: 109.35 kg

DRUGS (6)
  1. LASIX [Concomitant]
     Active Substance: FUROSEMIDE
  2. ACE INHIBITOR [Concomitant]
     Active Substance: UNSPECIFIED INGREDIENT
  3. ZEMAIRA [Suspect]
     Active Substance: .ALPHA.1-PROTEINASE INHIBITOR HUMAN
     Indication: ALPHA-1 ANTI-TRYPSIN DEFICIENCY
     Dosage: ?          QUANTITY:7 VIALS;OTHER FREQUENCY:ONCE A WEEK;OTHER ROUTE:INFUSION OVER 2 HOURS?
     Dates: start: 20170215
  4. DILTIAZEM. [Concomitant]
     Active Substance: DILTIAZEM
  5. ISOBRIDE [Concomitant]
  6. LANZOPAROLE [Concomitant]

REACTIONS (18)
  - Eye swelling [None]
  - Product complaint [None]
  - Pyrexia [None]
  - Dysuria [None]
  - Dry eye [None]
  - Pain [None]
  - Pollakiuria [None]
  - Chills [None]
  - Micturition urgency [None]
  - Asthenia [None]
  - Vision blurred [None]
  - Chest pain [None]
  - Fatigue [None]
  - Weight increased [None]
  - Bladder pain [None]
  - Back pain [None]
  - Influenza like illness [None]
  - Swelling face [None]

NARRATIVE: CASE EVENT DATE: 20190223
